FAERS Safety Report 7095772-4 (Version None)
Quarter: 2010Q4

REPORT INFORMATION
  Report Type: 
  Country: None (occurrence: None)
  Receive Date: 20101111
  Receipt Date: 20101028
  Transmission Date: 20110411
  Serious: Yes (Hospitalization, Other)
  Sender: FDA-Public Use
  Company Number: PHHY2010US73421

PATIENT
  Age: 56 Year
  Sex: Female

DRUGS (17)
  1. TRILEPTAL [Suspect]
     Indication: CONVULSION
     Dosage: 300 MG, TID
  2. CHANTIX [Interacting]
     Indication: SMOKING CESSATION THERAPY
     Dosage: 0.5 MG, QD
     Route: 048
     Dates: start: 20071204, end: 20071222
  3. CHANTIX [Interacting]
     Dosage: 0.5 MG, QD
     Route: 048
     Dates: start: 20080301, end: 20080401
  4. CHANTIX [Interacting]
     Dosage: 0.5 MG, QD
     Route: 048
     Dates: start: 20101007
  5. CHANTIX [Interacting]
     Dosage: 1 MG, BID
     Route: 048
  6. KLONOPIN [Interacting]
     Indication: CONVULSION
     Dosage: UNK
  7. CELEXA [Concomitant]
     Dosage: UNK
  8. KEPPRA [Concomitant]
     Indication: CONVULSION
     Dosage: 500 MG, Q6H
  9. ANTIDEPRESSANTS [Concomitant]
     Dosage: UNK
  10. ACTIVIA [Concomitant]
     Indication: IRRITABLE BOWEL SYNDROME
     Dosage: UNK
  11. REMERON [Concomitant]
     Dosage: UNK, DAILY
  12. CYMBALTA [Concomitant]
     Dosage: UNK, DAILY
  13. DETROL [Concomitant]
     Dosage: UNK, DAILY
  14. AMBIEN [Concomitant]
     Dosage: UNK, DAILY
  15. OXYCODONE HCL [Concomitant]
     Dosage: FOUR TIMES A DAY
  16. ATIVAN [Concomitant]
     Indication: PANIC ATTACK
     Dosage: UNK, PRN
  17. NASONEX [Concomitant]
     Indication: HYPERSENSITIVITY
     Dosage: UNK

REACTIONS (26)
  - ABDOMINAL DISCOMFORT [None]
  - ABDOMINAL PAIN UPPER [None]
  - BONE OPERATION [None]
  - CERVICAL SPINAL STENOSIS [None]
  - CLAUSTROPHOBIA [None]
  - CONTUSION [None]
  - CONVULSION [None]
  - CRYING [None]
  - DECREASED APPETITE [None]
  - DEPRESSED MOOD [None]
  - FALL [None]
  - FEAR [None]
  - FEELING ABNORMAL [None]
  - GASTRIC DILATATION [None]
  - GASTRIC ULCER [None]
  - GASTROOESOPHAGEAL REFLUX DISEASE [None]
  - HEADACHE [None]
  - HUNGER [None]
  - INTERVERTEBRAL DISC DEGENERATION [None]
  - JOINT SPRAIN [None]
  - MALAISE [None]
  - PATELLA FRACTURE [None]
  - SPINAL OSTEOARTHRITIS [None]
  - VOMITING [None]
  - WEIGHT DECREASED [None]
  - WEIGHT INCREASED [None]
